FAERS Safety Report 6739846-3 (Version None)
Quarter: 2010Q2

REPORT INFORMATION
  Report Type: 
  Country: None (occurrence: None)
  Receive Date: 20100525
  Receipt Date: 20100513
  Transmission Date: 20101027
  Serious: Yes (Hospitalization, Other)
  Sender: FDA-Public Use
  Company Number: PHHY2010ES31712

PATIENT
  Age: 62 Year
  Sex: Male

DRUGS (4)
  1. CARBAMAZEPINE [Suspect]
     Indication: BIPOLAR DISORDER
     Dosage: 600 MG DAILY
  2. CARBAMAZEPINE [Interacting]
     Dosage: 200 MG/DAY
  3. CARBAMAZEPINE [Interacting]
     Dosage: 600 MG/DAY
  4. LITHIUM CARBONATE [Interacting]
     Dosage: 800 MG DAILY

REACTIONS (7)
  - ABASIA [None]
  - ATAXIA [None]
  - BRADYKINESIA [None]
  - CLONUS [None]
  - GAIT DISTURBANCE [None]
  - INTENTION TREMOR [None]
  - POSITIVE ROMBERGISM [None]
